FAERS Safety Report 5034408-0 (Version None)
Quarter: 2006Q2

REPORT INFORMATION
  Report Type: 
  Country: None (occurrence: None)
  Receive Date: 20060518
  Receipt Date: 20050808
  Transmission Date: 20061013
  Serious: Yes (Other)
  Sender: FDA-Public Use
  Company Number: 2005112500

PATIENT
  Age: 31 Year
  Sex: Female
  Weight: 59.8748 kg

DRUGS (1)
  1. DEPO-PROVERA [Suspect]
     Indication: CONTRACEPTION
     Dosage: SEE IMAGE
     Route: 030

REACTIONS (3)
  - ACCIDENTAL OVERDOSE [None]
  - DIZZINESS [None]
  - HYPERHIDROSIS [None]
